FAERS Safety Report 16939813 (Version 4)
Quarter: 2020Q1

REPORT INFORMATION
  Report Type: Spontaneous
  Country: ES (occurrence: ES)
  Receive Date: 20191021
  Receipt Date: 20200110
  Transmission Date: 20200409
  Serious: Yes (Other)
  Sender: FDA-Public Use
  Company Number: ES-TEVA-2019-ES-1123561

PATIENT
  Age: 72 Year
  Sex: Female

DRUGS (2)
  1. ACEDIUR 20 MG/12.5MG COMPRIMIDOS , 30 COMPRIMIDOS [Interacting]
     Active Substance: CAPTOPRIL\HYDROCHLOROTHIAZIDE
     Indication: HYPERTENSION
     Dosage: 1 DF, 20 MG /12.5 MG
     Route: 048
     Dates: start: 201909, end: 20190920
  2. ENALAPRIL/HIDROCLOROTIAZIDA 20 MG/12,5 MG 28 COMPRIMIDOS [Suspect]
     Active Substance: ENALAPRIL MALEATE\HYDROCHLOROTHIAZIDE
     Indication: HYPERTENSION
     Dosage: 1 DF,20 MG/12.5 MG
     Route: 048
     Dates: start: 201909, end: 20190920

REACTIONS (4)
  - Hypotension [Recovered/Resolved]
  - Fall [Recovered/Resolved]
  - Drug interaction [Unknown]
  - Product selection error [Recovered/Resolved]

NARRATIVE: CASE EVENT DATE: 201909
